FAERS Safety Report 21413633 (Version 1)
Quarter: 2022Q4

REPORT INFORMATION
  Report Type: Spontaneous
  Country: DE (occurrence: DE)
  Receive Date: 20221006
  Receipt Date: 20221006
  Transmission Date: 20230113
  Serious: Yes (Hospitalization)
  Sender: FDA-Public Use
  Company Number: DE-ADRED-07836-01

PATIENT
  Age: 84 Year
  Sex: Female

DRUGS (6)
  1. METFORMIN HYDROCHLORIDE\SITAGLIPTIN PHOSPHATE [Suspect]
     Active Substance: METFORMIN HYDROCHLORIDE\SITAGLIPTIN PHOSPHATE
     Dosage: 850|50 MG, 1-0-0-0, TABLETS
     Route: 048
  2. INDAPAMIDE [Suspect]
     Active Substance: INDAPAMIDE
     Dosage: 2.5 MG, 0-1-0-0, TABLETS
     Route: 048
  3. DOXAZOSIN [Suspect]
     Active Substance: DOXAZOSIN MESYLATE
     Dosage: 4 MG, 0-1-0-0, TABLETS
     Route: 048
  4. NITRENDIPINE [Suspect]
     Active Substance: NITRENDIPINE
     Dosage: 20 MG, 0-1-0-0, TABLETS
     Route: 048
  5. CANDESARTAN [Suspect]
     Active Substance: CANDESARTAN
     Dosage: 32 MG, 0-1-0-0, TABLETS
     Route: 048
  6. BISOPROLOL FUMARATE\HYDROCHLOROTHIAZIDE [Suspect]
     Active Substance: BISOPROLOL FUMARATE\HYDROCHLOROTHIAZIDE
     Dosage: 10|25 MG, 0-1-0-0, TABLETS
     Route: 048

REACTIONS (7)
  - Fall [Unknown]
  - Product monitoring error [Unknown]
  - Memory impairment [Unknown]
  - Disorientation [Unknown]
  - Confusional state [Unknown]
  - Delirium [Unknown]
  - Hallucination, visual [Unknown]
